FAERS Safety Report 18817413 (Version 1)
Quarter: 2021Q1

REPORT INFORMATION
  Report Type: Spontaneous
  Country: US (occurrence: US)
  Receive Date: 20210201
  Receipt Date: 20210201
  Transmission Date: 20210419
  Serious: Yes (Hospitalization)
  Sender: FDA-Public Use
  Company Number: US-PACIRA-2021000045

PATIENT
  Age: 60 Year
  Sex: Male

DRUGS (10)
  1. ENTERIC?COATED ASPIRIN 325 MG [Concomitant]
     Indication: THROMBOSIS PROPHYLAXIS
     Dosage: BID
     Route: 065
  2. COLACE 100 [Concomitant]
     Indication: POSTOPERATIVE CARE
     Dosage: NOT PROVIDED
     Route: 065
  3. MELOXICAM 7.5 TYLENOL 1000 [Concomitant]
     Indication: POSTOPERATIVE ANALGESIA
     Dosage: NOT PROVIDED
     Route: 065
  4. OXYCODONE [Concomitant]
     Active Substance: OXYCODONE
     Indication: POSTOPERATIVE CARE
     Dosage: 5?10 MG Q6H OR AS NEEDED
     Route: 065
  5. VERSED 2MG [Concomitant]
     Indication: PREOPERATIVE CARE
     Dosage: 2 MG PERIOPERATIVE
     Route: 042
  6. GABAPENTIN. [Concomitant]
     Active Substance: GABAPENTIN
     Indication: POSTOPERATIVE CARE
     Dosage: BID FOR 2 WEEKS
     Route: 065
  7. EXPAREL [Suspect]
     Active Substance: BUPIVACAINE
     Indication: POSTOPERATIVE ANALGESIA
     Dosage: 266 MG, 20CC
     Route: 065
  8. CLINDAMYCIN. [Concomitant]
     Active Substance: CLINDAMYCIN
     Indication: POSTOPERATIVE CARE
     Dosage: FOR 2 WEEKS
     Route: 065
  9. TRAMADOL 50 [Concomitant]
     Active Substance: TRAMADOL
     Indication: POSTOPERATIVE CARE
     Dosage: Q6H OR AS NEEDED
     Route: 065
  10. ZOFRAN 4 [Concomitant]
     Indication: POSTOPERATIVE CARE
     Dosage: NOT PROVIDED
     Route: 065

REACTIONS (1)
  - Staphylococcal infection [Unknown]
